FAERS Safety Report 6847730-X (Version None)
Quarter: 2010Q3

REPORT INFORMATION
  Report Type: 
  Country: None (occurrence: None)
  Receive Date: 20100716
  Receipt Date: 20100713
  Transmission Date: 20110219
  Serious: Yes (Death, Hospitalization)
  Sender: FDA-Public Use
  Company Number: PHHY2010BR11099

PATIENT
  Age: 87 Year
  Sex: Female

DRUGS (2)
  1. EXELON [Suspect]
     Indication: DEMENTIA ALZHEIMER'S TYPE
     Dosage: DOSE INCREASED UNTIL REACHING THE IDEAL DOSE
     Dates: start: 20050101
  2. ANTI-ASTHMATICS [Concomitant]

REACTIONS (4)
  - DIARRHOEA [None]
  - GALLBLADDER OPERATION [None]
  - HEPATIC NEOPLASM MALIGNANT [None]
  - VOMITING [None]
